APPROVED DRUG PRODUCT: DOXYCYCLINE
Active Ingredient: DOXYCYCLINE HYCLATE
Strength: EQ 100MG BASE/VIAL
Dosage Form/Route: INJECTABLE;INJECTION
Application: A062450 | Product #001
Applicant: HIKMA PHARMACEUTICALS USA INC
Approved: Oct 27, 1983 | RLD: No | RS: No | Type: DISCN